FAERS Safety Report 24934000 (Version 1)
Quarter: 2025Q1

REPORT INFORMATION
  Report Type: Report from Study
  Country: US (occurrence: US)
  Receive Date: 20250206
  Receipt Date: 20250206
  Transmission Date: 20250409
  Serious: Yes (Hospitalization)
  Sender: EXELIXIS
  Company Number: US-EXELIXIS-CABO-24076920

PATIENT
  Sex: Female

DRUGS (13)
  1. CABOMETYX [Suspect]
     Active Substance: CABOZANTINIB S-MALATE
     Indication: Renal cell carcinoma
     Dosage: 40 MG, QD
     Dates: start: 20240411, end: 20240502
  2. CABOMETYX [Suspect]
     Active Substance: CABOZANTINIB S-MALATE
     Dosage: 20 MG, QD
     Dates: start: 20240523
  3. OPDIVO [Suspect]
     Active Substance: NIVOLUMAB
     Indication: Renal cell carcinoma
     Dosage: UNK, Q2WEEKS
     Dates: start: 20240411, end: 20240502
  4. OPDIVO [Suspect]
     Active Substance: NIVOLUMAB
     Dosage: UNK, Q2WEEKS
     Dates: start: 20240523
  5. METOPROLOL SUCCINATE [Concomitant]
     Active Substance: METOPROLOL SUCCINATE
  6. ATORVASTATIN [Concomitant]
     Active Substance: ATORVASTATIN
  7. LOSARTAN [Concomitant]
     Active Substance: LOSARTAN
  8. NEXIUM [Concomitant]
     Active Substance: ESOMEPRAZOLE MAGNESIUM
  9. VITAMIN D NOS [Concomitant]
     Active Substance: CHOLECALCIFEROL\ERGOCALCIFEROL
  10. KEFLEX [Concomitant]
     Active Substance: CEPHALEXIN
  11. NORVASC [Concomitant]
     Active Substance: AMLODIPINE BESYLATE
  12. SYNTHROID [Concomitant]
     Active Substance: LEVOTHYROXINE SODIUM
  13. ELIQUIS [Concomitant]
     Active Substance: APIXABAN

REACTIONS (12)
  - Dehydration [Not Recovered/Not Resolved]
  - Erythema [Recovered/Resolved]
  - Blood pressure increased [Recovering/Resolving]
  - Rash pruritic [Not Recovered/Not Resolved]
  - Fatigue [Not Recovered/Not Resolved]
  - Decreased appetite [Not Recovered/Not Resolved]
  - Weight decreased [Recovering/Resolving]
  - Asthenia [Not Recovered/Not Resolved]
  - Dysgeusia [Recovered/Resolved]
  - Dysphonia [Recovered/Resolved]
  - Mental disorder [Not Recovered/Not Resolved]
  - Urinary tract infection [Not Recovered/Not Resolved]
